FAERS Safety Report 15643307 (Version 1)
Quarter: 2018Q4

REPORT INFORMATION
  Report Type: Spontaneous
  Country: US (occurrence: US)
  Receive Date: 20181121
  Receipt Date: 20181121
  Transmission Date: 20190205
  Serious: Yes (Hospitalization)
  Sender: FDA-Public Use
  Company Number: None

PATIENT
  Sex: Female

DRUGS (6)
  1. OMEPRAZOLE 20MG [Concomitant]
     Active Substance: OMEPRAZOLE
  2. ONDANSETRON 8MG [Concomitant]
     Active Substance: ONDANSETRON
  3. TAMSULOSIN 0.4MG [Concomitant]
     Active Substance: TAMSULOSIN
  4. FORTEO [Suspect]
     Active Substance: TERIPARATIDE
     Indication: OSTEOPOROSIS
     Route: 058
     Dates: start: 20180710
  5. OXYCODONE 15MG [Concomitant]
     Active Substance: OXYCODONE
  6. VITAMIN B-12 2000MCG [Concomitant]

REACTIONS (3)
  - Nephrolithiasis [None]
  - Kidney infection [None]
  - Product dose omission [None]
